FAERS Safety Report 9937017 (Version 1)
Quarter: 2014Q1

REPORT INFORMATION
  Report Type: Spontaneous
  Country: US (occurrence: None)
  Receive Date: 20140116
  Receipt Date: 20140116
  Transmission Date: 20141002
  Serious: Yes (Other)
  Sender: FDA-Public Use
  Company Number: E2B_00001212

PATIENT
  Age: 5 Year
  Sex: Female

DRUGS (5)
  1. CEFDINIR [Suspect]
     Indication: PRODUCT USED FOR UNKNOWN INDICATION
     Route: 048
     Dates: start: 20130801, end: 201308
  2. FLOVENT [Suspect]
     Indication: PRODUCT USED FOR UNKNOWN INDICATION
     Route: 048
  3. FLONASE [Suspect]
     Indication: PRODUCT USED FOR UNKNOWN INDICATION
     Route: 045
  4. VENTOLIN (INHALATION SOLUTION) (ALBUTEROL SULPHATE) [Concomitant]
  5. ALBUTEROL FOR NEBULIZER (INHALATION SOLUTION) (ALBUTEROL) [Concomitant]

REACTIONS (2)
  - Pharyngitis streptococcal [None]
  - Ear infection [None]
